FAERS Safety Report 6228731-1 (Version None)
Quarter: 2009Q2

REPORT INFORMATION
  Report Type: 
  Country: None (occurrence: None)
  Receive Date: 20090615
  Receipt Date: 20090608
  Transmission Date: 20091009
  Serious: Yes (Other)
  Sender: FDA-Public Use
  Company Number: BR-JNJFOC-20090602931

PATIENT
  Age: 39 Year
  Sex: Female
  Weight: 61 kg

DRUGS (2)
  1. ORTHO EVRA [Suspect]
     Indication: CONTRACEPTION
     Dosage: ETHINYL ESTRADIOL 0.6 MG/ NORELGESTROMIN 6 MG
     Route: 062
  2. CALCIUM AND VITAMIN D [Concomitant]
     Indication: OSTEOPENIA
     Route: 065

REACTIONS (2)
  - HYPOGLYCAEMIA [None]
  - METRORRHAGIA [None]
